FAERS Safety Report 6405457-2 (Version None)
Quarter: 2009Q4

REPORT INFORMATION
  Report Type: 
  Country: None (occurrence: None)
  Receive Date: 20091016
  Receipt Date: 20091016
  Transmission Date: 20100525
  Serious: Yes (Other)
  Sender: FDA-Public Use
  Company Number: None

PATIENT
  Age: 20 Year
  Sex: Female
  Weight: 67.586 kg

DRUGS (1)
  1. PROMETHAZINE [Suspect]
     Indication: NAUSEA
     Dosage: 25 MG EVERY 4 HOURS AS NEEDED ORAL
     Route: 048
     Dates: start: 20090701, end: 20090801

REACTIONS (17)
  - ABDOMINAL PAIN UPPER [None]
  - ANXIETY [None]
  - CONFUSIONAL STATE [None]
  - DIARRHOEA [None]
  - DIZZINESS [None]
  - HALLUCINATION [None]
  - HEART RATE INCREASED [None]
  - HOT FLUSH [None]
  - HYPERHIDROSIS [None]
  - NAUSEA [None]
  - NIGHTMARE [None]
  - PRESYNCOPE [None]
  - RESTLESSNESS [None]
  - SOMNOLENCE [None]
  - TREMOR [None]
  - VOMITING [None]
  - WEIGHT DECREASED [None]
